FAERS Safety Report 6242327-7 (Version None)
Quarter: 2009Q2

REPORT INFORMATION
  Report Type: 
  Country: None (occurrence: None)
  Receive Date: 20090624
  Receipt Date: 20090618
  Transmission Date: 20091009
  Serious: Yes (Hospitalization)
  Sender: FDA-Public Use
  Company Number: DE-BIOGENIDEC-2008BI034284

PATIENT
  Age: 25 Year
  Sex: Male
  Weight: 115 kg

DRUGS (2)
  1. TYSABRI [Suspect]
     Indication: RELAPSING-REMITTING MULTIPLE SCLEROSIS
     Route: 042
     Dates: start: 20070501, end: 20081209
  2. TYSABRI [Suspect]
     Route: 042
     Dates: end: 20090508

REACTIONS (1)
  - MULTIPLE SCLEROSIS [None]
